FAERS Safety Report 4605037-5 (Version None)
Quarter: 2005Q1

REPORT INFORMATION
  Report Type: 
  Country: None (occurrence: None)
  Receive Date: 20050311
  Receipt Date: 20050228
  Transmission Date: 20050727
  Serious: Yes (Disabling)
  Sender: FDA-Public Use
  Company Number: GB-JNJFOC-20050300613

PATIENT
  Age: 52 Year
  Sex: Female
  Weight: 67 kg

DRUGS (6)
  1. TOPIRAMATE [Suspect]
     Indication: HEADACHE
     Route: 049
     Dates: start: 20041210, end: 20050125
  2. VALPROIC ACID [Concomitant]
     Indication: HEADACHE
     Route: 049
  3. NORETHISTERONE [Concomitant]
     Indication: MENORRHAGIA
     Route: 049
  4. PROPRANOLOL [Concomitant]
     Indication: HEADACHE
     Route: 049
  5. ASPIRIN [Concomitant]
     Route: 049
  6. THYROXINE [Concomitant]
     Route: 049

REACTIONS (3)
  - CATARACT [None]
  - MACULOPATHY [None]
  - VISUAL ACUITY REDUCED [None]
